FAERS Safety Report 9897381 (Version 1)
Quarter: 2014Q1

REPORT INFORMATION
  Report Type: Spontaneous
  Country: US (occurrence: US)
  Receive Date: 20140214
  Receipt Date: 20140214
  Transmission Date: 20141002
  Serious: No
  Sender: FDA-Public Use
  Company Number: US-DRREDDYS-USA/USA/13/0032411

PATIENT
  Age: 63 Year
  Sex: Male

DRUGS (2)
  1. MINOCYCLINE HYDROCHLORIDE [Suspect]
     Indication: LEPROSY
     Route: 065
  2. RIFAMPIN [Suspect]
     Indication: LEPROSY
     Route: 065

REACTIONS (1)
  - Skin hyperpigmentation [Not Recovered/Not Resolved]
